FAERS Safety Report 24165035 (Version 1)
Quarter: 2024Q3

REPORT INFORMATION
  Report Type: Report from Study
  Country: US (occurrence: US)
  Receive Date: 20240802
  Receipt Date: 20240802
  Transmission Date: 20241017
  Serious: Yes (Hospitalization, Other)
  Sender: ABBVIE
  Company Number: US-ABBVIE-5854375

PATIENT
  Sex: Female

DRUGS (2)
  1. SKYRIZI [Suspect]
     Active Substance: RISANKIZUMAB-RZAA
     Indication: Crohn^s disease
     Route: 042
     Dates: start: 20240613, end: 20240613
  2. SKYRIZI [Suspect]
     Active Substance: RISANKIZUMAB-RZAA
     Indication: Crohn^s disease
     Route: 042
     Dates: start: 20240711

REACTIONS (3)
  - Brain fog [Unknown]
  - Disturbance in attention [Unknown]
  - Vitamin B12 deficiency [Recovering/Resolving]

NARRATIVE: CASE EVENT DATE: 20240101
